FAERS Safety Report 5159960-6 (Version None)
Quarter: 2006Q4

REPORT INFORMATION
  Report Type: 
  Country: None (occurrence: None)
  Receive Date: 20061117
  Receipt Date: 20061103
  Transmission Date: 20070319
  Serious: Yes (Other)
  Sender: FDA-Public Use
  Company Number: US018778

PATIENT
  Age: 27 Year
  Sex: Female

DRUGS (1)
  1. ACTIQ [Suspect]
     Indication: MIGRAINE
     Dosage: UP TO 5 LORZENGES PER DAY
     Dates: start: 20030101

REACTIONS (4)
  - DRUG DEPENDENCE [None]
  - DRUG EXPOSURE DURING PREGNANCY [None]
  - IMPRISONMENT [None]
  - LEGAL PROBLEM [None]
